FAERS Safety Report 9595409 (Version 2)
Quarter: 2013Q4

REPORT INFORMATION
  Report Type: Spontaneous
  Country: JP (occurrence: JP)
  Receive Date: 20131004
  Receipt Date: 20131004
  Transmission Date: 20140711
  Serious: Yes (Other)
  Sender: FDA-Public Use
  Company Number: JP-ASTRAZENECA-2012SE56606

PATIENT
  Age: 65 Year
  Sex: Female
  Weight: 42 kg

DRUGS (7)
  1. XYLOCAINE [Suspect]
     Indication: LOCAL ANAESTHESIA
     Route: 065
  2. THIOPENTAL SODIUM [Concomitant]
     Indication: INDUCTION OF ANAESTHESIA
     Route: 040
  3. ROCURONIUM BROMIDE [Concomitant]
     Indication: INDUCTION OF ANAESTHESIA
     Route: 040
  4. FENTANYL [Concomitant]
     Indication: INDUCTION OF ANAESTHESIA
     Route: 040
  5. SEVOFLURANE [Concomitant]
     Indication: MAINTENANCE OF ANAESTHESIA
     Dosage: DOSE UNKNOWN
     Route: 055
  6. REMIFENTANIL HYDROCHLORIDE [Concomitant]
     Indication: MAINTENANCE OF ANAESTHESIA
     Dosage: 0.15 MCG/KG/MIN
     Route: 065
  7. BICARBONATED RINGER^S SOLUTION [Concomitant]
     Route: 065

REACTIONS (4)
  - Incorrect route of drug administration [Unknown]
  - Heart rate increased [Recovered/Resolved]
  - Blood pressure systolic increased [Recovered/Resolved]
  - Blood lactic acid increased [Recovered/Resolved]
